FAERS Safety Report 23365818 (Version 1)
Quarter: 2024Q1

REPORT INFORMATION
  Report Type: Spontaneous
  Country: CN (occurrence: None)
  Receive Date: 20240104
  Receipt Date: 20240104
  Transmission Date: 20240410
  Serious: Yes (Other)
  Sender: FDA-Public Use
  Company Number: CN-ROCHE-3485171

PATIENT
  Age: 68 Year
  Sex: Female
  Weight: 58 kg

DRUGS (12)
  1. AVASTIN [Suspect]
     Active Substance: BEVACIZUMAB
     Indication: Diaphragm neoplasm
     Route: 041
     Dates: start: 20231205, end: 20231205
  2. AVASTIN [Suspect]
     Active Substance: BEVACIZUMAB
     Indication: Colon cancer
  3. AVASTIN [Suspect]
     Active Substance: BEVACIZUMAB
     Indication: Ovarian cancer
  4. AVASTIN [Suspect]
     Active Substance: BEVACIZUMAB
     Indication: Metastases to rectum
  5. CARBOPLATIN [Suspect]
     Active Substance: CARBOPLATIN
     Indication: Diaphragm neoplasm
     Route: 041
     Dates: start: 20231205, end: 20231205
  6. CARBOPLATIN [Suspect]
     Active Substance: CARBOPLATIN
     Indication: Colon cancer
  7. CARBOPLATIN [Suspect]
     Active Substance: CARBOPLATIN
     Indication: Ovarian cancer
  8. CARBOPLATIN [Suspect]
     Active Substance: CARBOPLATIN
     Indication: Metastases to rectum
  9. PACLITAXEL [Suspect]
     Active Substance: PACLITAXEL
     Indication: Diaphragm neoplasm
     Route: 041
     Dates: start: 20231205, end: 20231205
  10. PACLITAXEL [Suspect]
     Active Substance: PACLITAXEL
     Indication: Colon cancer
  11. PACLITAXEL [Suspect]
     Active Substance: PACLITAXEL
     Indication: Ovarian cancer
  12. PACLITAXEL [Suspect]
     Active Substance: PACLITAXEL
     Indication: Metastases to rectum

REACTIONS (2)
  - Myelosuppression [Recovering/Resolving]
  - Pyrexia [Unknown]

NARRATIVE: CASE EVENT DATE: 20231212
